FAERS Safety Report 18266470 (Version 2)
Quarter: 2020Q3

REPORT INFORMATION
  Report Type: Spontaneous
  Country: US (occurrence: US)
  Receive Date: 20200915
  Receipt Date: 20200924
  Transmission Date: 20201103
  Serious: Yes (Death, Hospitalization, Other)
  Sender: FDA-Public Use
  Company Number: US-ABBVIE-20K-163-3566418-00

PATIENT
  Age: 77 Year
  Sex: Male

DRUGS (10)
  1. ELIQUIS [Concomitant]
     Active Substance: APIXABAN
     Indication: CORONARY ARTERY BYPASS
  2. AVODART [Concomitant]
     Active Substance: DUTASTERIDE
     Indication: BENIGN PROSTATIC HYPERPLASIA
  3. AMIODARONE [Concomitant]
     Active Substance: AMIODARONE
     Indication: CARDIAC FAILURE CONGESTIVE
  4. METOPROLOL. [Concomitant]
     Active Substance: METOPROLOL
     Indication: BLOOD PRESSURE MEASUREMENT
  5. SPIRONOLACTONE. [Concomitant]
     Active Substance: SPIRONOLACTONE
     Indication: CARDIAC FAILURE CONGESTIVE
  6. IMBRUVICA [Suspect]
     Active Substance: IBRUTINIB
     Indication: CHRONIC LYMPHOCYTIC LEUKAEMIA
     Route: 048
     Dates: end: 20200902
  7. IMBRUVICA [Suspect]
     Active Substance: IBRUTINIB
     Indication: PRODUCT USED FOR UNKNOWN INDICATION
     Route: 048
     Dates: start: 20200629
  8. ATORVASTATIN [Concomitant]
     Active Substance: ATORVASTATIN
     Indication: BLOOD CHOLESTEROL
  9. FLOMAX [Concomitant]
     Active Substance: TAMSULOSIN HYDROCHLORIDE
     Indication: BENIGN PROSTATIC HYPERPLASIA
  10. LASIX [Concomitant]
     Active Substance: FUROSEMIDE
     Indication: CARDIAC DISORDER

REACTIONS (7)
  - Cardiac failure congestive [Fatal]
  - Abdominal pain upper [Unknown]
  - Renal failure [Unknown]
  - Malaise [Unknown]
  - Haemoglobin decreased [Unknown]
  - Respiratory failure [Unknown]
  - Histiocytic sarcoma [Unknown]

NARRATIVE: CASE EVENT DATE: 20200906
